FAERS Safety Report 7672638-X (Version None)
Quarter: 2011Q3

REPORT INFORMATION
  Report Type: 
  Country: None (occurrence: None)
  Receive Date: 20110809
  Receipt Date: 20110728
  Transmission Date: 20111222
  Serious: Yes (Hospitalization)
  Sender: FDA-Public Use
  Company Number: JP-JNJFOC-20110802450

PATIENT
  Age: 62 Year
  Sex: Female

DRUGS (1)
  1. DORIPENEM MONOHYDRATE [Suspect]
     Indication: SEPSIS
     Route: 042
     Dates: start: 20110610, end: 20110618

REACTIONS (1)
  - PLATELET COUNT INCREASED [None]
